FAERS Safety Report 7362314-5 (Version None)
Quarter: 2011Q1

REPORT INFORMATION
  Report Type: 
  Country: None (occurrence: None)
  Receive Date: 20110318
  Receipt Date: 20110315
  Transmission Date: 20110831
  Serious: Yes (Hospitalization, Other)
  Sender: FDA-Public Use
  Company Number: FR-PFIZER INC-2010177271

PATIENT
  Age: 52 Year
  Sex: Female

DRUGS (3)
  1. LYRICA [Concomitant]
     Indication: NEURALGIA
     Dosage: 450 MG DAILY DIVIDED INTO 2 INTAKES
     Route: 048
     Dates: start: 20091104
  2. DAFALGAN [Concomitant]
     Indication: PAIN
     Dosage: 4 G DAILY DIVIDED INTO 4 INTAKES
     Route: 048
     Dates: start: 20051010
  3. CELEBREX [Suspect]
     Indication: OSTEOARTHRITIS
     Dosage: 200 TO 400 MG/DAILY IN 2 INTAKES
     Dates: start: 20100106, end: 20100720

REACTIONS (4)
  - SUICIDE ATTEMPT [None]
  - HEPATITIS [None]
  - ABDOMINAL PAIN UPPER [None]
  - HAEMANGIOMA OF LIVER [None]
